FAERS Safety Report 8158558-5 (Version None)
Quarter: 2012Q1

REPORT INFORMATION
  Report Type: 
  Country: None (occurrence: None)
  Receive Date: 20120223
  Receipt Date: 20120213
  Transmission Date: 20120608
  Serious: Yes (Other)
  Sender: FDA-Public Use
  Company Number: PT-JNJFOC-20120210417

PATIENT
  Sex: Female
  Weight: 76 kg

DRUGS (1)
  1. TRAMADOL HCL [Suspect]
     Indication: OSTEOARTHRITIS
     Route: 048
     Dates: start: 20120111

REACTIONS (5)
  - VULVOVAGINAL PRURITUS [None]
  - FACE OEDEMA [None]
  - GENERALISED OEDEMA [None]
  - TONGUE OEDEMA [None]
  - PRURITUS [None]
